FAERS Safety Report 12844087 (Version 1)
Quarter: 2016Q4

REPORT INFORMATION
  Report Type: Spontaneous
  Country: US (occurrence: US)
  Receive Date: 20161013
  Receipt Date: 20161013
  Transmission Date: 20170207
  Serious: No
  Sender: FDA-Public Use
  Company Number: US-009507513-1610USA004086

PATIENT
  Age: 32 Year
  Sex: Female

DRUGS (4)
  1. LEVOTHYROXINE SODIUM. [Concomitant]
     Active Substance: LEVOTHYROXINE SODIUM
  2. NEXPLANON [Suspect]
     Active Substance: ETONOGESTREL
     Indication: CONTRACEPTION
     Dosage: 1 ROD
     Route: 059
     Dates: start: 20160511, end: 20161010
  3. AMBIEN [Concomitant]
     Active Substance: ZOLPIDEM TARTRATE
  4. EFFEXOR [Concomitant]
     Active Substance: VENLAFAXINE HYDROCHLORIDE

REACTIONS (3)
  - Implant site pain [Unknown]
  - Device deployment issue [Recovered/Resolved]
  - Administration site discomfort [Unknown]

NARRATIVE: CASE EVENT DATE: 20160511
